FAERS Safety Report 11852541 (Version 2)
Quarter: 2016Q1

REPORT INFORMATION
  Report Type: Spontaneous
  Country: US (occurrence: US)
  Receive Date: 20151218
  Receipt Date: 20160113
  Transmission Date: 20160526
  Serious: Yes (Hospitalization)
  Sender: FDA-Public Use
  Company Number: US-LPDUSPRD-20151025

PATIENT
  Age: 58 Year
  Sex: Female

DRUGS (3)
  1. BENZOCAINE. [Suspect]
     Active Substance: BENZOCAINE
     Dosage: MULTIPLE APPLICATIONS
     Route: 061
  2. GENERAL ANASTHESIA [Concomitant]
     Dosage: DOSE UNKNOWN
     Route: 065
  3. LIDOCAINE HCL [Suspect]
     Active Substance: LIDOCAINE HYDROCHLORIDE
     Dosage: 50 MG
     Route: 042

REACTIONS (2)
  - Respiratory failure [Unknown]
  - Methaemoglobinaemia [Unknown]
